FAERS Safety Report 13352212 (Version 1)
Quarter: 2017Q1

REPORT INFORMATION
  Report Type: Spontaneous
  Country: US (occurrence: US)
  Receive Date: 20170320
  Receipt Date: 20170320
  Transmission Date: 20170429
  Serious: No
  Sender: FDA-Public Use
  Company Number: US-SA-2016SA088216

PATIENT
  Age: 84 Year
  Sex: Female
  Weight: 55 kg

DRUGS (6)
  1. CARVEDILOL. [Concomitant]
     Active Substance: CARVEDILOL
     Indication: VASCULAR GRAFT
     Route: 065
     Dates: start: 2008
  2. PRAVASTATIN. [Concomitant]
     Active Substance: PRAVASTATIN
     Indication: CARDIAC OPERATION
     Route: 065
     Dates: start: 2008
  3. FOLIC ACID. [Concomitant]
     Active Substance: FOLIC ACID
     Indication: VASCULAR GRAFT
     Route: 065
     Dates: start: 2008
  4. NASACORT ALLERGY 24HR [Suspect]
     Active Substance: TRIAMCINOLONE ACETONIDE
     Indication: MULTIPLE ALLERGIES
     Dosage: DOSE: (55MCG/SPRAY) TWO SPRAYS IN EACH NOSTRIL ONCE DAILY.?STOP DATE: LAST WEEK
     Route: 045
     Dates: start: 20160404, end: 20160410
  5. LEVOTHYROXINE. [Concomitant]
     Active Substance: LEVOTHYROXINE
     Route: 065
     Dates: start: 2008
  6. LOSARTAN. [Concomitant]
     Active Substance: LOSARTAN
     Indication: VASCULAR GRAFT
     Route: 065
     Dates: start: 2008

REACTIONS (2)
  - Tinnitus [Recovered/Resolved]
  - Drug ineffective [Unknown]
